FAERS Safety Report 8193776-1 (Version None)
Quarter: 2012Q1

REPORT INFORMATION
  Report Type: 
  Country: None (occurrence: None)
  Receive Date: 20120308
  Receipt Date: 20120222
  Transmission Date: 20120608
  Serious: Yes (Other)
  Sender: FDA-Public Use
  Company Number: BE-WATSON-2012-03322

PATIENT
  Age: 20 Year
  Sex: Male

DRUGS (1)
  1. METRONIDAZOLE [Suspect]
     Indication: COLITIS ULCERATIVE
     Dosage: 1500 MG, DAILY
     Route: 065

REACTIONS (10)
  - CENTRAL NERVOUS SYSTEM LESION [None]
  - ALLODYNIA [None]
  - NUCLEAR MAGNETIC RESONANCE IMAGING BRAIN ABNORMAL [None]
  - COORDINATION ABNORMAL [None]
  - VISUAL ACUITY REDUCED [None]
  - COLOUR VISION TESTS ABNORMAL RED-GREEN [None]
  - DYSAESTHESIA [None]
  - PARAESTHESIA [None]
  - OPTIC NERVE INJURY [None]
  - DYSARTHRIA [None]
